FAERS Safety Report 15347072 (Version 1)
Quarter: 2018Q3

REPORT INFORMATION
  Report Type: Spontaneous
  Country: GR (occurrence: GR)
  Receive Date: 20180904
  Receipt Date: 20180904
  Transmission Date: 20181010
  Serious: Yes (Other)
  Sender: FDA-Public Use
  Company Number: GR-PFIZER INC-2018350953

PATIENT

DRUGS (4)
  1. METHYLPREDNISOLONE. [Suspect]
     Active Substance: METHYLPREDNISOLONE
     Dosage: 4 MG, DAILY
  2. AZATHIOPRINE. [Concomitant]
     Active Substance: AZATHIOPRINE
     Indication: TEMPORAL ARTERITIS
     Dosage: UNK
  3. METHOTREXATE SODIUM. [Concomitant]
     Active Substance: METHOTREXATE SODIUM
     Indication: TEMPORAL ARTERITIS
     Dosage: UNK
  4. METHYLPREDNISOLONE. [Suspect]
     Active Substance: METHYLPREDNISOLONE
     Indication: TEMPORAL ARTERITIS
     Dosage: UNK

REACTIONS (3)
  - Microangiopathy [Unknown]
  - Diabetes mellitus [Unknown]
  - Osteoporosis [Unknown]
